FAERS Safety Report 17995119 (Version 1)
Quarter: 2020Q3

REPORT INFORMATION
  Report Type: Spontaneous
  Country: US (occurrence: US)
  Receive Date: 20200708
  Receipt Date: 20200708
  Transmission Date: 20201103
  Serious: No
  Sender: FDA-Public Use
  Company Number: US-LEXICON PHARMACEUTICALS, INC-20-1606-00501

PATIENT
  Age: 73 Year
  Sex: Female

DRUGS (14)
  1. XERMELO [Suspect]
     Active Substance: TELOTRISTAT ETHYL
  2. OCTREOTIDE ACETATE. [Concomitant]
     Active Substance: OCTREOTIDE ACETATE
  3. VASERETIC [Concomitant]
     Active Substance: ENALAPRIL MALEATE\HYDROCHLOROTHIAZIDE
  4. CALCIUM [Concomitant]
     Active Substance: CALCIUM
  5. TOPAMAX [Concomitant]
     Active Substance: TOPIRAMATE
  6. MULTIVITAMIN [Concomitant]
     Active Substance: VITAMINS
  7. XERMELO [Suspect]
     Active Substance: TELOTRISTAT ETHYL
     Indication: CARCINOID TUMOUR OF THE SMALL BOWEL
     Dates: start: 20180406
  8. HYDROCODONE/ACETAMINOPHEN [Concomitant]
     Active Substance: ACETAMINOPHEN\HYDROCODONE
  9. GABAPENTIN. [Concomitant]
     Active Substance: GABAPENTIN
  10. AFINITOR [Concomitant]
     Active Substance: EVEROLIMUS
  11. POTASSIUM [Concomitant]
     Active Substance: POTASSIUM
  12. LEVOTHYROXINE SODIUM. [Concomitant]
     Active Substance: LEVOTHYROXINE SODIUM
  13. DEXAMETHASONE. [Concomitant]
     Active Substance: DEXAMETHASONE
  14. PRAVASTATIN SODIUM. [Concomitant]
     Active Substance: PRAVASTATIN SODIUM

REACTIONS (1)
  - Diarrhoea [Unknown]
